FAERS Safety Report 6079166-6 (Version None)
Quarter: 2009Q1

REPORT INFORMATION
  Report Type: 
  Country: None (occurrence: None)
  Receive Date: 20090216
  Receipt Date: 20090209
  Transmission Date: 20090719
  Serious: Yes (Disabling)
  Sender: FDA-Public Use
  Company Number: B0491014A

PATIENT
  Sex: Female

DRUGS (6)
  1. QVAR 40 [Suspect]
     Indication: COUGH
     Dosage: 100UG FOUR TIMES PER DAY
     Route: 055
     Dates: start: 20051006, end: 20060222
  2. QVAR 40 [Suspect]
     Dosage: 400MCG PER DAY
     Route: 055
     Dates: start: 20060410, end: 20060424
  3. SALAMOL [Suspect]
     Indication: COUGH
     Dosage: 100UG EIGHT TIMES PER DAY
     Route: 055
     Dates: start: 20050927, end: 20060222
  4. ACETYLCYSTEINE [Concomitant]
     Dosage: 200MG TWICE PER DAY
     Route: 048
     Dates: start: 20060209, end: 20060226
  5. FERROUS SULPHATE [Concomitant]
     Dosage: 200MG THREE TIMES PER DAY
     Route: 048
     Dates: start: 20050101, end: 20060222
  6. PREDNISOLONE [Concomitant]
     Indication: COUGH
     Route: 048
     Dates: start: 20051018, end: 20051028

REACTIONS (3)
  - BURNOUT SYNDROME [None]
  - HYPERVENTILATION [None]
  - PSYCHOSOMATIC DISEASE [None]
